FAERS Safety Report 21637988 (Version 9)
Quarter: 2023Q2

REPORT INFORMATION
  Report Type: Spontaneous
  Country: US (occurrence: US)
  Receive Date: 20221124
  Receipt Date: 20230420
  Transmission Date: 20230721
  Serious: Yes (Hospitalization)
  Sender: FDA-Public Use
  Company Number: US-BRISTOL-MYERS SQUIBB COMPANY-2022-140116

PATIENT
  Age: 76 Year
  Sex: Female

DRUGS (2)
  1. POMALYST [Suspect]
     Active Substance: POMALIDOMIDE
     Indication: Plasma cell myeloma
     Dosage: TAKE 1 CAP BY MOUTH DAILY WHOLE W/ WATER W/O FOOD AT LEAST 2HR BEFORE OR AFTER A MEAL ON DAYS 1-21 O
     Route: 048
     Dates: start: 20221021
  2. POMALYST [Suspect]
     Active Substance: POMALIDOMIDE
     Dosage: 2 MG, TAKE 1 CAP BY MOUTH DAILY WHOLE W/ WATER W/O FOOD AT LEAST 2HR BEFORE OR AFTER A MEAL ON DAYS
     Route: 048
     Dates: start: 20220929

REACTIONS (8)
  - Rash [Not Recovered/Not Resolved]
  - Skin disorder [Recovered/Resolved]
  - Influenza [Recovering/Resolving]
  - Product dose omission issue [Recovered/Resolved]
  - Blood pressure increased [Unknown]
  - Feeling abnormal [Unknown]
  - Fatigue [Unknown]
  - Road traffic accident [Recovering/Resolving]

NARRATIVE: CASE EVENT DATE: 20230201
